FAERS Safety Report 15926325 (Version 3)
Quarter: 2019Q1

REPORT INFORMATION
  Report Type: Spontaneous
  Country: DE (occurrence: DE)
  Receive Date: 20190206
  Receipt Date: 20190308
  Transmission Date: 20190417
  Serious: Yes (Hospitalization, Other)
  Sender: FDA-Public Use
  Company Number: DE-AUROBINDO-AUR-APL-2019-005425

PATIENT

DRUGS (14)
  1. PANTOPRAZOLE [Concomitant]
     Active Substance: PANTOPRAZOLE
     Indication: PRODUCT USED FOR UNKNOWN INDICATION
     Dosage: 20 MILLIGRAM, ONCE A DAY
     Route: 065
  2. VITAMINS NOS [Concomitant]
     Active Substance: VITAMINS
     Indication: PRODUCT USED FOR UNKNOWN INDICATION
     Dosage: UNK
     Route: 065
  3. VALSARTAN FILM-COATED TABLET [Suspect]
     Active Substance: VALSARTAN
     Indication: HYPERTENSION
     Dosage: 160 MILLIGRAM, DAILY
     Route: 065
     Dates: start: 201412
  4. PANTOZOL [Concomitant]
     Active Substance: PANTOPRAZOLE SODIUM
     Indication: PRODUCT USED FOR UNKNOWN INDICATION
     Dosage: 80 MILLIGRAM, ONCE A DAY, 40 MG, BID
     Route: 048
  5. AMLODIPINE [Concomitant]
     Active Substance: AMLODIPINE BESYLATE
     Dosage: 5 MILLIGRAM, ONCE A DAY
     Route: 065
  6. MOXONIDINE [Concomitant]
     Active Substance: MOXONIDINE
     Indication: HYPERTENSION
     Dosage: UNK, ONCE A DAY
     Route: 065
     Dates: start: 201706
  7. MOVICOL [Concomitant]
     Active Substance: POLYETHYLENE GLYCOL 3350\POTASSIUM CHLORIDE\SODIUM BICARBONATE\SODIUM CHLORIDE
     Indication: PRODUCT USED FOR UNKNOWN INDICATION
     Dosage: UNK,UNK,ONCE A DAY
     Route: 065
  8. METOPROLOL. [Concomitant]
     Active Substance: METOPROLOL
     Indication: HYPERTENSION
     Dosage: 95 MILLIGRAM, ONCE A DAY
     Route: 065
     Dates: start: 201510
  9. VALSARTAN FILM-COATED TABLET [Suspect]
     Active Substance: VALSARTAN
     Dosage: 320 MILLIGRAM, DAILY
     Route: 065
     Dates: start: 20161206, end: 201809
  10. AMLODIPINE [Concomitant]
     Active Substance: AMLODIPINE BESYLATE
     Indication: HYPERTENSION
     Dosage: 10 MILLIGRAM, ONCE A DAY
     Route: 065
     Dates: start: 201412
  11. NEPRESOL [Concomitant]
     Indication: PRODUCT USED FOR UNKNOWN INDICATION
     Dosage: 25 MILLIGRAM, ONCE A DAY
     Route: 065
     Dates: start: 201706
  12. VALSARTAN FILM-COATED TABLET [Suspect]
     Active Substance: VALSARTAN
     Dosage: 160 MILLIGRAM, DAILY
     Route: 065
     Dates: start: 20151013, end: 20161205
  13. VALSARTAN FILM-COATED TABLET [Suspect]
     Active Substance: VALSARTAN
     Dosage: 80 MILLIGRAM, ONCE A DAY
     Route: 065
  14. RIOPAN [Concomitant]
     Indication: PRODUCT USED FOR UNKNOWN INDICATION
     Dosage: UNK, 3 TIMES A DAY
     Route: 065

REACTIONS (33)
  - Blood urea increased [Recovering/Resolving]
  - Basophil percentage decreased [Unknown]
  - Haematocrit decreased [Unknown]
  - C-reactive protein increased [Unknown]
  - Gastrointestinal infection [Unknown]
  - Myocarditis [Unknown]
  - Gastroenteritis [Unknown]
  - Haemoglobin decreased [Unknown]
  - Glomerular filtration rate decreased [Unknown]
  - Gastrooesophageal reflux disease [Unknown]
  - Prostatitis [Unknown]
  - N-terminal prohormone brain natriuretic peptide increased [Unknown]
  - Eosinophil percentage decreased [Unknown]
  - Neutrophil percentage increased [Unknown]
  - Blood cholinesterase decreased [Unknown]
  - Specific gravity urine decreased [Unknown]
  - Palpitations [Unknown]
  - Acute coronary syndrome [Unknown]
  - Activated partial thromboplastin time shortened [Unknown]
  - Blood chloride increased [Unknown]
  - Fatigue [Unknown]
  - Tachycardia [Unknown]
  - Encephalitis viral [Unknown]
  - Monocyte count increased [Unknown]
  - Erythroblast count decreased [Unknown]
  - Gastritis [Unknown]
  - White blood cell count increased [Recovering/Resolving]
  - Renal cell carcinoma [Recovered/Resolved with Sequelae]
  - Benign prostatic hyperplasia [Unknown]
  - Blood creatinine increased [Unknown]
  - Red blood cell count decreased [Recovering/Resolving]
  - Oedema peripheral [Unknown]
  - Gastric disorder [Unknown]

NARRATIVE: CASE EVENT DATE: 201412
